FAERS Safety Report 7621497-X (Version None)
Quarter: 2011Q3

REPORT INFORMATION
  Report Type: 
  Country: None (occurrence: None)
  Receive Date: 20110719
  Receipt Date: 20110713
  Transmission Date: 20111222
  Serious: Yes (Hospitalization)
  Sender: FDA-Public Use
  Company Number: US-ABBOTT-11P-163-0721933-00

PATIENT
  Sex: Female
  Weight: 118.04 kg

DRUGS (10)
  1. HYDROCHLOROTHIAZIDE [Concomitant]
     Indication: HYPERTENSION
  2. LEXAPRO [Concomitant]
     Indication: DEPRESSION
  3. CLONOPIN [Concomitant]
     Indication: ANXIETY
  4. HUMIRA [Suspect]
     Indication: RHEUMATOID ARTHRITIS
     Dates: start: 20070101
  5. HUMIRA [Suspect]
  6. ZYRTEC [Concomitant]
     Indication: SEASONAL ALLERGY
  7. SINGULAIR [Concomitant]
     Indication: ASTHMA
  8. SIMVASTATIN [Concomitant]
     Indication: BLOOD CHOLESTEROL INCREASED
  9. IBUPROFEN [Concomitant]
     Indication: PAIN
  10. HUMIRA [Suspect]

REACTIONS (4)
  - MEMORY IMPAIRMENT [None]
  - KNEE ARTHROPLASTY [None]
  - PAIN IN EXTREMITY [None]
  - DRUG DOSE OMISSION [None]
